FAERS Safety Report 7236286-8 (Version None)
Quarter: 2011Q1

REPORT INFORMATION
  Report Type: 
  Country: None (occurrence: None)
  Receive Date: 20110120
  Receipt Date: 20110107
  Transmission Date: 20110831
  Serious: Yes (Death, Other)
  Sender: FDA-Public Use
  Company Number: US-ELI_LILLY_AND_COMPANY-US201011001065

PATIENT
  Sex: Male

DRUGS (10)
  1. AMIODARONE [Concomitant]
  2. COUMADIN [Concomitant]
  3. CYMBALTA [Suspect]
     Dosage: UNK, UNKNOWN
  4. CYMBALTA [Suspect]
     Dosage: 30 MG, DAILY (1/D)
     Dates: start: 20100908, end: 20101011
  5. METOPROLOL [Concomitant]
     Dosage: 25 MG, 2/D
  6. OPIOIDS [Concomitant]
  7. FLECAINIDE [Concomitant]
  8. XANAX [Concomitant]
  9. METOPROLOL [Concomitant]
     Dosage: 50 MG, 2/D
  10. RYTHMOL [Concomitant]
     Dosage: 325 MG, 2/D

REACTIONS (3)
  - DEATH [None]
  - SUICIDAL IDEATION [None]
  - DRUG INEFFECTIVE [None]
